FAERS Safety Report 12191328 (Version 1)
Quarter: 2016Q1

REPORT INFORMATION
  Report Type: Spontaneous
  Country: TR (occurrence: TR)
  Receive Date: 20160318
  Receipt Date: 20160318
  Transmission Date: 20160526
  Serious: Yes (Hospitalization)
  Sender: FDA-Public Use
  Company Number: TR-ELI_LILLY_AND_COMPANY-TR201603003236

PATIENT
  Age: 52 Year
  Sex: Male

DRUGS (1)
  1. TADALAFIL [Suspect]
     Active Substance: TADALAFIL
     Indication: PRODUCT USED FOR UNKNOWN INDICATION
     Dosage: 20 MG, 2/W
     Route: 065

REACTIONS (4)
  - Sleep-related eating disorder [Recovered/Resolved]
  - Hypoglycaemia [Unknown]
  - Somnambulism [Recovered/Resolved]
  - Memory impairment [Recovered/Resolved]
